FAERS Safety Report 5750401-4 (Version None)
Quarter: 2008Q2

REPORT INFORMATION
  Report Type: 
  Country: None (occurrence: None)
  Receive Date: 20080528
  Receipt Date: 20080528
  Transmission Date: 20081010
  Serious: No
  Sender: FDA-Public Use
  Company Number: None

PATIENT
  Sex: Male
  Weight: 111.1313 kg

DRUGS (2)
  1. HEPARIN SODIUM [Suspect]
     Indication: ANGIOGRAM CEREBRAL
     Dosage: 11000 UNITS TOTAL PRN IV
     Route: 042
     Dates: start: 20080524
  2. HEPARIN SODIUM [Suspect]
     Indication: STENT PLACEMENT
     Dosage: 11000 UNITS TOTAL PRN IV
     Route: 042
     Dates: start: 20080524

REACTIONS (2)
  - DRUG INEFFECTIVE [None]
  - PHARMACEUTICAL PRODUCT COMPLAINT [None]
